FAERS Safety Report 14498741 (Version 4)
Quarter: 2018Q3

REPORT INFORMATION
  Report Type: Spontaneous
  Country: US (occurrence: US)
  Receive Date: 20180207
  Receipt Date: 20180802
  Transmission Date: 20181010
  Serious: No
  Sender: FDA-Public Use
  Company Number: US-PFIZER INC-2017053866

PATIENT
  Age: 10 Year
  Sex: Female

DRUGS (2)
  1. GENOTROPIN [Suspect]
     Active Substance: SOMATROPIN
     Indication: TURNER^S SYNDROME
     Dosage: 1.2 MG, 1X/DAY (6 DAYS A WEEK)
  2. GENOTROPIN [Suspect]
     Active Substance: SOMATROPIN
     Dosage: 2.6 MG (6 DAYS A WEEK)
     Dates: start: 20140403

REACTIONS (7)
  - Vitamin D decreased [Unknown]
  - Headache [Unknown]
  - Drug hypersensitivity [Unknown]
  - White blood cell count decreased [Unknown]
  - Drug ineffective [Unknown]
  - Lymphocyte count decreased [Unknown]
  - Anion gap increased [Unknown]
